FAERS Safety Report 9770342 (Version 1)
Quarter: 2013Q4

REPORT INFORMATION
  Report Type: Spontaneous
  Country: JP (occurrence: JP)
  Receive Date: 20131218
  Receipt Date: 20131218
  Transmission Date: 20140711
  Serious: Yes (Hospitalization)
  Sender: FDA-Public Use
  Company Number: JP-ASTRAZENECA-2013SE90856

PATIENT
  Age: 76 Year
  Sex: Male

DRUGS (7)
  1. SYMBICORT TURBUHALER [Suspect]
     Indication: CHRONIC OBSTRUCTIVE PULMONARY DISEASE
     Dosage: 4 DF, FREQUENCY UNKNOWN
     Route: 055
  2. GENINAX [Suspect]
     Route: 048
     Dates: start: 20131209, end: 20131209
  3. SPIRIVA [Concomitant]
     Route: 055
  4. ARTIST [Concomitant]
     Route: 048
  5. CLARITHROMYCIN [Concomitant]
     Route: 048
  6. MUCODYNE [Concomitant]
     Route: 048
  7. BUFFERIN [Concomitant]
     Route: 048

REACTIONS (4)
  - Chronic obstructive pulmonary disease [Not Recovered/Not Resolved]
  - Oxygen saturation decreased [Not Recovered/Not Resolved]
  - Depressed level of consciousness [Not Recovered/Not Resolved]
  - Oedema [Not Recovered/Not Resolved]
